FAERS Safety Report 4415964-X (Version None)
Quarter: 2004Q3

REPORT INFORMATION
  Report Type: 
  Country: None (occurrence: None)
  Receive Date: 20040730
  Receipt Date: 20040722
  Transmission Date: 20050211
  Serious: Yes (Hospitalization)
  Sender: FDA-Public Use
  Company Number: STA-AE-04-MTX-321

PATIENT
  Age: 51 Year
  Sex: Female

DRUGS (7)
  1. METHOTREXATE [Suspect]
     Indication: RHEUMATOID ARTHRITIS
     Dosage: 1 CAPSULE (2.5 MG) ONCE WEEKLY,  ORAL
     Route: 048
     Dates: start: 20010612
  2. PLACEBO FOR ETANERCEPT (PLACEBO FOR ETANERCEPT, INJECTION) [Suspect]
     Indication: RHEUMATOID ARTHRITIS
     Dosage: ONE INJECTION TWICE WEEKLY, SC
     Route: 058
     Dates: start: 20010612, end: 20030530
  3. SALMETEROL (SALMETEROL) [Concomitant]
  4. LESSINA (LEVONORGESTREL/ETHINYL ESTRADIOL) [Concomitant]
  5. NAPROSYN [Concomitant]
  6. BECLOMETHASONE DIPROPIONATE [Concomitant]
  7. DICLOFENAC (DICLOFENAC) [Concomitant]

REACTIONS (4)
  - ABDOMINAL ABSCESS [None]
  - INTESTINAL DILATATION [None]
  - LARGE INTESTINE PERFORATION [None]
  - PERITONITIS [None]
